FAERS Safety Report 6044211-0 (Version None)
Quarter: 2009Q1

REPORT INFORMATION
  Report Type: 
  Country: None (occurrence: None)
  Receive Date: 20090120
  Receipt Date: 20090115
  Transmission Date: 20090719
  Serious: Yes (Other)
  Sender: FDA-Public Use
  Company Number: BR-ABBOTT-09P-020-0498236-00

PATIENT
  Sex: Female

DRUGS (6)
  1. NOCTAL [Suspect]
     Indication: DEPRESSION
     Route: 048
     Dates: start: 19860101
  2. NOCTAL [Suspect]
     Indication: INSOMNIA
  3. LEXOTAN [Concomitant]
     Indication: TACHYCARDIA
     Dates: start: 19860101
  4. LEVOTHYROXIN (PUTAN T4) [Concomitant]
     Indication: THYROID DISORDER
     Route: 048
  5. HIDANTAL [Concomitant]
     Indication: EPILEPSY
     Route: 048
  6. CONJUGATED ESTROGENS [Concomitant]
     Indication: HORMONE REPLACEMENT THERAPY
     Dates: start: 19890101

REACTIONS (2)
  - ALOPECIA [None]
  - NEOPLASM MALIGNANT [None]
